FAERS Safety Report 24312144 (Version 1)
Quarter: 2024Q3

REPORT INFORMATION
  Report Type: Spontaneous
  Country: SZ (occurrence: SZ)
  Receive Date: 20240912
  Receipt Date: 20240912
  Transmission Date: 20241017
  Serious: Yes (Other)
  Sender: Carnegie Pharmaceuticals
  Company Number: SZ-CARNEGIE-000055

PATIENT
  Age: 69 Year
  Sex: Female

DRUGS (1)
  1. LETROZOLE [Suspect]
     Active Substance: LETROZOLE
     Indication: Invasive ductal breast carcinoma
     Route: 065

REACTIONS (1)
  - Cutaneous vasculitis [Recovered/Resolved]
